FAERS Safety Report 17205747 (Version 1)
Quarter: 2019Q4

REPORT INFORMATION
  Report Type: Spontaneous
  Country: US (occurrence: US)
  Receive Date: 20191227
  Receipt Date: 20191227
  Transmission Date: 20200122
  Serious: Yes (Other)
  Sender: FDA-Public Use
  Company Number: US-BRISTOL-MYERS SQUIBB COMPANY-BMS-2019-123002

PATIENT
  Age: 62 Year
  Sex: Female
  Weight: 70.8 kg

DRUGS (1)
  1. NIVOLUMAB [Suspect]
     Active Substance: NIVOLUMAB
     Indication: ADENOCARCINOMA
     Dosage: 3 MILLIGRAM/KILOGRAM, Q2WK
     Route: 042

REACTIONS (3)
  - Immune-mediated enterocolitis [Recovered/Resolved]
  - Intentional product use issue [Unknown]
  - Biliary tract disorder [Recovering/Resolving]
